FAERS Safety Report 5303774-0 (Version None)
Quarter: 2007Q2

REPORT INFORMATION
  Report Type: 
  Country: None (occurrence: None)
  Receive Date: 20070420
  Receipt Date: 20070419
  Transmission Date: 20071010
  Serious: Yes (Death, Hospitalization, Other)
  Sender: FDA-Public Use
  Company Number: US-BRISTOL-MYERS SQUIBB COMPANY-13600002

PATIENT
  Age: 41 Year
  Sex: Female
  Weight: 75 kg

DRUGS (2)
  1. AMPHOTERICIN B [Suspect]
     Indication: MENINGITIS CRYPTOCOCCAL
     Route: 042
  2. AMPHOTERICIN B [Concomitant]
     Indication: MENINGITIS CRYPTOCOCCAL

REACTIONS (11)
  - ACCIDENTAL OVERDOSE [None]
  - CARDIAC ARREST [None]
  - CORONARY ARTERY ANEURYSM [None]
  - HYPERKALAEMIA [None]
  - HYPOTENSION [None]
  - INTRAVASCULAR HAEMOLYSIS [None]
  - METABOLIC ACIDOSIS [None]
  - MULTI-ORGAN FAILURE [None]
  - MYOCARDIAL ISCHAEMIA [None]
  - RENAL FAILURE ACUTE [None]
  - TACHYCARDIA [None]
